FAERS Safety Report 14790378 (Version 1)
Quarter: 2018Q2

REPORT INFORMATION
  Report Type: Spontaneous
  Country: US (occurrence: US)
  Receive Date: 20180413
  Receipt Date: 20180413
  Transmission Date: 20180711
  Serious: Yes (Disabling)
  Sender: FDA-Public Use
  Company Number: None

PATIENT
  Age: 57 Year
  Sex: Male
  Weight: 77.11 kg

DRUGS (10)
  1. TRAMADOL. [Concomitant]
     Active Substance: TRAMADOL
  2. COPEGUS [Suspect]
     Active Substance: RIBAVIRIN
  3. PEGASYS [Suspect]
     Active Substance: PEGINTERFERON ALFA-2A
  4. CLONAZEPAM. [Concomitant]
     Active Substance: CLONAZEPAM
  5. RIBAVIRIN. [Suspect]
     Active Substance: RIBAVIRIN
  6. ASPIRIN. [Concomitant]
     Active Substance: ASPIRIN
  7. INTERFERON [Suspect]
     Active Substance: INTERFERON
     Indication: HEPATITIS C
     Dosage: 1 INJECTION PER WEEK; 6 PILLS 2X DAY, MOUTH + INJECTION
     Route: 048
     Dates: start: 200802, end: 200803
  8. POLYETHELENE GLYCOL [Concomitant]
     Active Substance: POLYETHYLENE GLYCOL 3350
  9. LEVOTHYROXINE. [Concomitant]
     Active Substance: LEVOTHYROXINE
  10. IBUPROFEN. [Concomitant]
     Active Substance: IBUPROFEN

REACTIONS (17)
  - Somnambulism [None]
  - Weight decreased [None]
  - Peripheral coldness [None]
  - Impaired quality of life [None]
  - Loss of personal independence in daily activities [None]
  - Pulmonary valve incompetence [None]
  - Dyspnoea [None]
  - Heart valve incompetence [None]
  - Osteoarthritis [None]
  - Joint dislocation [None]
  - Gait disturbance [None]
  - Myocardial infarction [None]
  - Bronchospasm [None]
  - Loss of consciousness [None]
  - Inflammation [None]
  - Hypoaesthesia [None]
  - Pain [None]

NARRATIVE: CASE EVENT DATE: 2008
